FAERS Safety Report 13322286 (Version 1)
Quarter: 2017Q1

REPORT INFORMATION
  Report Type: Spontaneous
  Country: US (occurrence: US)
  Receive Date: 20170310
  Receipt Date: 20170310
  Transmission Date: 20170428
  Serious: Yes (Hospitalization)
  Sender: FDA-Public Use
  Company Number: US-ASTRAZENECA-2017SE24565

PATIENT
  Sex: Male

DRUGS (2)
  1. ALLOPURINOL. [Concomitant]
     Active Substance: ALLOPURINOL
     Dosage: UNKNOWN
     Route: 065
  2. ZURAMPIC [Suspect]
     Active Substance: LESINURAD
     Indication: GOUT
     Route: 048
     Dates: start: 201612

REACTIONS (3)
  - Nephrolithiasis [Unknown]
  - Circumstance or information capable of leading to medication error [Unknown]
  - Pain [Unknown]
